FAERS Safety Report 8445570-1 (Version None)
Quarter: 2012Q2

REPORT INFORMATION
  Report Type: 
  Country: None (occurrence: None)
  Receive Date: 20120618
  Receipt Date: 20120608
  Transmission Date: 20120825
  Serious: Yes (Hospitalization)
  Sender: FDA-Public Use
  Company Number: FR-JNJFOC-20120605823

PATIENT
  Age: 57 Year
  Sex: Female

DRUGS (8)
  1. ISENTRESS [Concomitant]
     Route: 065
  2. ZOLPIDEM TARTRATE [Concomitant]
     Route: 065
  3. POTASSIUM CHLORIDE [Concomitant]
     Route: 065
  4. EPIVIR [Concomitant]
     Route: 065
  5. INTELENCE [Suspect]
     Indication: HIV TEST POSITIVE
     Route: 048
  6. VOLIBRIS [Interacting]
     Indication: PULMONARY ARTERIAL HYPERTENSION
     Route: 048
     Dates: start: 20090223
  7. LASIX [Concomitant]
     Route: 065
  8. REVATIO [Interacting]
     Indication: PULMONARY ARTERIAL HYPERTENSION
     Route: 048
     Dates: start: 20070901

REACTIONS (6)
  - GENERAL PHYSICAL HEALTH DETERIORATION [None]
  - OBSTRUCTIVE AIRWAYS DISORDER [None]
  - CONDITION AGGRAVATED [None]
  - BRONCHITIS [None]
  - PULMONARY ARTERIAL HYPERTENSION [None]
  - DRUG INTERACTION [None]
